FAERS Safety Report 6915734-4 (Version None)
Quarter: 2010Q3

REPORT INFORMATION
  Report Type: 
  Country: None (occurrence: None)
  Receive Date: 20100810
  Receipt Date: 20100224
  Transmission Date: 20110219
  Serious: No
  Sender: FDA-Public Use
  Company Number: A0842600A

PATIENT
  Age: 48 Year
  Sex: Male

DRUGS (3)
  1. PAXIL CR [Suspect]
     Indication: DEPRESSION
     Dosage: 37.5MG PER DAY
     Route: 048
  2. PAROXETINE HCL [Suspect]
     Indication: DEPRESSION
     Dosage: 37.5MG PER DAY
     Route: 048
     Dates: start: 20100130
  3. PAXIL [Suspect]
     Indication: DEPRESSION
     Dosage: 50MG PER DAY
     Route: 048

REACTIONS (13)
  - ADVERSE EVENT [None]
  - AGITATION [None]
  - BEDRIDDEN [None]
  - DEPRESSION [None]
  - DIZZINESS [None]
  - DRUG INEFFECTIVE [None]
  - EXERCISE TOLERANCE DECREASED [None]
  - FATIGUE [None]
  - FEELING ABNORMAL [None]
  - FEELING HOT [None]
  - HYPOAESTHESIA [None]
  - MEDICATION ERROR [None]
  - SOMNOLENCE [None]
